FAERS Safety Report 24824638 (Version 9)
Quarter: 2025Q4

REPORT INFORMATION
  Report Type: Report from Study
  Country: US (occurrence: None)
  Receive Date: 20250109
  Receipt Date: 20251216
  Transmission Date: 20260117
  Serious: Yes (Other)
  Sender: UCB
  Company Number: US-UCBSA-2025001144

PATIENT
  Weight: 27 kg

DRUGS (9)
  1. FENFLURAMINE [Interacting]
     Active Substance: FENFLURAMINE
     Indication: Severe myoclonic epilepsy of infancy
     Dosage: 0.36 MILLIGRAM/KILOGRAM/DAY TOTALLY 9.68 MILLIGRAM PER DAY
  2. FENFLURAMINE [Interacting]
     Active Substance: FENFLURAMINE
     Dosage: 1.2 MILLILITER, 2X/DAY (BID) FOR 7 DAYS
  3. FENFLURAMINE [Interacting]
     Active Substance: FENFLURAMINE
     Dosage: 1.8 MILLILITER, 2X/DAY (BID) FOR 7 DAYS
  4. FENFLURAMINE [Interacting]
     Active Substance: FENFLURAMINE
     Dosage: 2.4 MILLILITER, 2X/DAY (BID) FOR 7 DAYS
  5. FENFLURAMINE [Interacting]
     Active Substance: FENFLURAMINE
     Dosage: 2.2 MILLILITER, 2X/DAY (BID)
     Route: 061
  6. FENFLURAMINE [Interacting]
     Active Substance: FENFLURAMINE
     Dosage: 2.2 MILLILITER, 2X/DAY (BID)
  7. FENFLURAMINE [Interacting]
     Active Substance: FENFLURAMINE
     Dosage: 2.2 MILLILITER, 2X/DAY (BID), 0.39 MG/KG/DAY, 9.68 MG/DAY
  8. CLOBAZAM [Suspect]
     Active Substance: CLOBAZAM
     Indication: Severe myoclonic epilepsy of infancy
     Dosage: 3.75 MILLIGRAM, 2X/DAY (BID)
     Route: 061
  9. STIRIPENTOL [Concomitant]
     Active Substance: STIRIPENTOL
     Indication: Severe myoclonic epilepsy of infancy
     Dosage: 500 MILLIGRAM, 2X/DAY (BID)
     Route: 061

REACTIONS (10)
  - Seizure [Not Recovered/Not Resolved]
  - Fatigue [Not Recovered/Not Resolved]
  - Decreased appetite [Not Recovered/Not Resolved]
  - Epistaxis [Not Recovered/Not Resolved]
  - Somnolence [Recovering/Resolving]
  - Insomnia [Not Recovered/Not Resolved]
  - Nasopharyngitis [Not Recovered/Not Resolved]
  - Drug interaction [Unknown]
  - Drug level increased [Unknown]
  - Weight abnormal [Not Recovered/Not Resolved]
